FAERS Safety Report 14631375 (Version 2)
Quarter: 2018Q1

REPORT INFORMATION
  Report Type: Spontaneous
  Country: TR (occurrence: TR)
  Receive Date: 20180313
  Receipt Date: 20180320
  Transmission Date: 20180509
  Serious: No
  Sender: FDA-Public Use
  Company Number: TR-SA-2018SA069851

PATIENT
  Age: 43 Year
  Sex: Female
  Weight: 85 kg

DRUGS (3)
  1. APIDRA SOLOSTAR [Suspect]
     Active Substance: INSULIN GLULISINE
     Indication: GESTATIONAL DIABETES
     Dosage: DOSE:64 UNIT(S)
     Route: 058
     Dates: start: 20180306
  2. SOLOSTAR [Suspect]
     Active Substance: DEVICE
     Indication: GESTATIONAL DIABETES
     Dates: start: 20180306
  3. NPH INSULIN [Concomitant]
     Active Substance: INSULIN BEEF
     Dosage: DOSE: 1X8 DOSE
     Route: 065

REACTIONS (3)
  - Hyperglycaemia [Unknown]
  - Blood glucose increased [Unknown]
  - Exposure during pregnancy [Unknown]
